FAERS Safety Report 16703033 (Version 1)
Quarter: 2019Q3

REPORT INFORMATION
  Report Type: Spontaneous
  Country: US (occurrence: US)
  Receive Date: 20190814
  Receipt Date: 20190814
  Transmission Date: 20191004
  Serious: No
  Sender: FDA-Public Use
  Company Number: US-AMGEN-USASP2019129044

PATIENT
  Age: 76 Year
  Sex: Male

DRUGS (1)
  1. NEULASTA [Suspect]
     Active Substance: PEGFILGRASTIM
     Indication: NEUTROPENIA
     Dosage: 6 MILLIGRAM, QMO
     Route: 065
     Dates: start: 201907

REACTIONS (3)
  - Muscular weakness [Unknown]
  - Pelvic pain [Unknown]
  - Insomnia [Unknown]

NARRATIVE: CASE EVENT DATE: 201907
